FAERS Safety Report 9315444 (Version 2)
Quarter: 2013Q2

REPORT INFORMATION
  Report Type: Spontaneous
  Country: US (occurrence: US)
  Receive Date: 20130529
  Receipt Date: 20130530
  Transmission Date: 20140414
  Serious: No
  Sender: FDA-Public Use
  Company Number: US-009507513-1305USA011432

PATIENT
  Sex: Female
  Weight: 54.42 kg

DRUGS (3)
  1. MIRALAX [Suspect]
     Indication: CONSTIPATION
     Dosage: 17 G, QD
     Route: 048
     Dates: start: 20130304, end: 20130430
  2. MIRALAX [Suspect]
     Indication: MEDICAL OBSERVATION
  3. COLAZAL [Concomitant]
     Indication: COLITIS ULCERATIVE
     Dosage: UNK, UNKNOWN

REACTIONS (3)
  - Incorrect drug administration duration [Unknown]
  - Product taste abnormal [Unknown]
  - Product odour abnormal [Unknown]
